FAERS Safety Report 20501667 (Version 1)
Quarter: 2022Q1

REPORT INFORMATION
  Report Type: Report from Study
  Country: DE (occurrence: DE)
  Receive Date: 20220222
  Receipt Date: 20220222
  Transmission Date: 20220423
  Serious: Yes (Other)
  Sender: FDA-Public Use
  Company Number: DE-BIOGEN-2022BI01099113

PATIENT
  Age: 50 Year
  Sex: Female
  Weight: 50 kg

DRUGS (1)
  1. TECFIDERA [Suspect]
     Active Substance: DIMETHYL FUMARATE
     Indication: Multiple sclerosis
     Route: 048
     Dates: start: 20160501, end: 20220131

REACTIONS (1)
  - Cervix carcinoma [Not Recovered/Not Resolved]

NARRATIVE: CASE EVENT DATE: 20211201
